FAERS Safety Report 9636254 (Version 2)
Quarter: 2013Q4

REPORT INFORMATION
  Report Type: Spontaneous
  Country: US (occurrence: US)
  Receive Date: 20131021
  Receipt Date: 20131021
  Transmission Date: 20140711
  Serious: No
  Sender: FDA-Public Use
  Company Number: US-MYLANLABS-2013S1017608

PATIENT
  Age: 76 Year
  Sex: Male
  Weight: 81.65 kg

DRUGS (3)
  1. TRAMADOL HYDROCHLORIDE AND ACETAMINOPHEN TABLETS [Suspect]
     Indication: ARTHRALGIA
     Route: 048
     Dates: start: 201307
  2. TRAMADOL HYDROCHLORIDE AND ACETAMINOPHEN TABLETS [Suspect]
     Indication: INSOMNIA
     Route: 048
     Dates: start: 201307
  3. METOPROLOL [Concomitant]
     Indication: BLOOD PRESSURE INCREASED
     Route: 048

REACTIONS (3)
  - Drug ineffective for unapproved indication [Recovering/Resolving]
  - Insomnia [Recovering/Resolving]
  - Agitation [Recovering/Resolving]
